FAERS Safety Report 12428266 (Version 2)
Quarter: 2016Q2

REPORT INFORMATION
  Report Type: Spontaneous
  Country: JP (occurrence: JP)
  Receive Date: 20160602
  Receipt Date: 20160610
  Transmission Date: 20160815
  Serious: Yes (Other)
  Sender: FDA-Public Use
  Company Number: JP-ACTAVIS-2016-11406

PATIENT
  Age: 56 Year
  Sex: Male

DRUGS (2)
  1. DOCETAXEL (UNKNOWN) [Suspect]
     Active Substance: DOCETAXEL
     Dosage: 20 MG/M2, 1/WEEK (TOTAL DOSE ADMINISTERED WAS 205 MG/M2)
     Route: 065
  2. DOCETAXEL (UNKNOWN) [Suspect]
     Active Substance: DOCETAXEL
     Indication: SKIN ANGIOSARCOMA
     Dosage: 60 MG/M2, ONCE A MONTH
     Route: 065

REACTIONS (1)
  - Scleroderma [Recovered/Resolved]

NARRATIVE: CASE EVENT DATE: 20131224
